FAERS Safety Report 21675518 (Version 1)
Quarter: 2022Q4

REPORT INFORMATION
  Report Type: Spontaneous
  Country: ES (occurrence: ES)
  Receive Date: 20221202
  Receipt Date: 20221202
  Transmission Date: 20230112
  Serious: Yes (Life-Threatening)
  Sender: FDA-Public Use
  Company Number: None

PATIENT
  Age: 58 Year
  Sex: Male

DRUGS (3)
  1. IBUPROFEN [Suspect]
     Active Substance: IBUPROFEN
     Indication: Myalgia
     Dosage: 600 MILLIGRAM, Q8H (600.0 MG EVERY 8 HOURS)
     Route: 048
     Dates: start: 20220919
  2. LEVOFLOXACIN [Suspect]
     Active Substance: LEVOFLOXACIN
     Indication: Gouty arthritis
     Dosage: 25 MILLIGRAM (25.0 MG BREAKFAST DINNER)
     Route: 048
     Dates: start: 20100928
  3. ALLOPURINOL [Concomitant]
     Active Substance: ALLOPURINOL
     Indication: Gouty arthritis
     Dosage: 300 MILLIGRAM (300.0 MG BREAKFAST)
     Route: 048
     Dates: start: 20100824

REACTIONS (2)
  - Peritonitis [Recovering/Resolving]
  - Duodenal perforation [Recovering/Resolving]

NARRATIVE: CASE EVENT DATE: 20220923
